FAERS Safety Report 4636421-1 (Version None)
Quarter: 2005Q2

REPORT INFORMATION
  Report Type: 
  Country: None (occurrence: None)
  Receive Date: 20050413
  Receipt Date: 20050413
  Transmission Date: 20051028
  Serious: Yes (Hospitalization)
  Sender: FDA-Public Use
  Company Number: None

PATIENT
  Age: 61 Year
  Sex: Male
  Weight: 108.5 kg

DRUGS (8)
  1. LINEZOLID     600MG [Suspect]
     Indication: ARTHRITIS INFECTIVE
     Dosage: 600 MG   BID    ORAL
     Route: 048
     Dates: start: 20041020, end: 20050403
  2. LINEZOLID     600MG [Suspect]
     Indication: INTERVERTEBRAL DISCITIS
     Dosage: 600 MG   BID    ORAL
     Route: 048
     Dates: start: 20041020, end: 20050403
  3. LINEZOLID     600MG [Suspect]
     Indication: STAPHYLOCOCCAL SEPSIS
     Dosage: 600 MG   BID    ORAL
     Route: 048
     Dates: start: 20041020, end: 20050403
  4. WARFARIN SODIUM [Concomitant]
  5. LISINOPRIL [Concomitant]
  6. METOPROLOL TARTRATE [Concomitant]
  7. FUROSEMIDE [Concomitant]
  8. PRANDIN [Concomitant]

REACTIONS (4)
  - ABSCESS [None]
  - BLOOD GLUCOSE DECREASED [None]
  - DEPRESSED LEVEL OF CONSCIOUSNESS [None]
  - THROMBOCYTOPENIA [None]
